FAERS Safety Report 10139765 (Version 1)
Quarter: 2014Q2

REPORT INFORMATION
  Report Type: Spontaneous
  Country: US (occurrence: US)
  Receive Date: 20140429
  Receipt Date: 20140429
  Transmission Date: 20141212
  Serious: Yes (Disabling)
  Sender: FDA-Public Use
  Company Number: US-PFIZER INC-2014116561

PATIENT
  Age: 62 Year
  Sex: Female
  Weight: 86.17 kg

DRUGS (3)
  1. CELEBREX [Suspect]
     Indication: ARTHRITIS
     Dosage: 200 MG, 1X/DAY
     Route: 048
  2. OXYCONTIN [Concomitant]
     Dosage: UNK
  3. VICODIN [Concomitant]
     Dosage: UNK

REACTIONS (2)
  - Arthritis [Unknown]
  - Back disorder [Unknown]
